FAERS Safety Report 5709632-1 (Version None)
Quarter: 2008Q2

REPORT INFORMATION
  Report Type: 
  Country: None (occurrence: None)
  Receive Date: 20080418
  Receipt Date: 20080409
  Transmission Date: 20081010
  Serious: Yes (Hospitalization)
  Sender: FDA-Public Use
  Company Number: B0516069A

PATIENT
  Age: 76 Year
  Sex: Male

DRUGS (18)
  1. ZOPHREN [Suspect]
     Dosage: 8MG CYCLIC
     Route: 048
     Dates: start: 20071210, end: 20080220
  2. DOXORUBICIN HCL [Suspect]
     Dosage: 52.5MG CYCLIC
     Route: 042
     Dates: start: 20071210, end: 20080220
  3. ENDOXAN [Suspect]
     Dosage: 1575MG CYCLIC
     Route: 042
     Dates: start: 20071210, end: 20080220
  4. UROMITEXAN [Suspect]
     Dosage: 600MG CYCLIC
     Route: 048
     Dates: start: 20071210, end: 20080220
  5. VINCRISTINE [Suspect]
     Dosage: 2MG CYCLIC
     Route: 042
     Dates: start: 20071210, end: 20080220
  6. SOLU-MEDROL [Suspect]
     Dosage: 60MG CYCLIC
     Route: 042
     Dates: start: 20071210, end: 20080220
  7. CARDIOXANE [Suspect]
     Dosage: 2100MG CYCLIC
     Route: 042
     Dates: start: 20071210, end: 20080220
  8. GRANOCYTE [Suspect]
     Route: 042
     Dates: start: 20071214, end: 20080229
  9. PHYSIOTENS [Concomitant]
     Indication: DRUG USE FOR UNKNOWN INDICATION
     Dosage: .4MG IN THE MORNING
     Route: 048
  10. IRBESARTAN [Concomitant]
     Indication: DRUG USE FOR UNKNOWN INDICATION
     Dosage: 300MG PER DAY
     Route: 048
  11. LASILIX [Concomitant]
     Indication: DRUG USE FOR UNKNOWN INDICATION
     Dosage: 40MG PER DAY
     Route: 048
  12. MANIDIPINE [Concomitant]
     Indication: DRUG USE FOR UNKNOWN INDICATION
     Dosage: 20MG PER DAY
     Route: 048
  13. OMEPRAZOLE [Concomitant]
     Indication: DRUG USE FOR UNKNOWN INDICATION
     Dosage: 20MG PER DAY
     Route: 048
  14. INTETRIX [Concomitant]
     Indication: DRUG USE FOR UNKNOWN INDICATION
     Dosage: 20MG PER DAY
     Route: 048
  15. SEROPLEX [Concomitant]
     Indication: DRUG USE FOR UNKNOWN INDICATION
     Dosage: 10MG PER DAY
     Route: 048
  16. CORTANCYL [Concomitant]
     Indication: DRUG USE FOR UNKNOWN INDICATION
     Dosage: 5MG PER DAY
     Route: 048
  17. IMOVANE [Concomitant]
     Indication: DRUG USE FOR UNKNOWN INDICATION
     Dosage: 1TAB PER DAY
     Route: 048
  18. PRAVASTATIN [Concomitant]
     Dosage: 40MG PER DAY

REACTIONS (2)
  - COLITIS ISCHAEMIC [None]
  - RECTAL HAEMORRHAGE [None]
